FAERS Safety Report 9418097 (Version 1)
Quarter: 2013Q3

REPORT INFORMATION
  Report Type: Spontaneous
  Country: US (occurrence: US)
  Receive Date: 20130724
  Receipt Date: 20130724
  Transmission Date: 20140515
  Serious: Yes (Hospitalization)
  Sender: FDA-Public Use
  Company Number: US-B.I. PHARMACEUTICALS,INC./RIDGEFIELD-2013-BI-21389BP

PATIENT
  Age: 61 Year
  Sex: Male
  Weight: 82 kg

DRUGS (4)
  1. PRADAXA [Suspect]
     Indication: ATRIAL FIBRILLATION
     Dosage: 300 MG
     Route: 048
     Dates: start: 201107
  2. METOPROLOL [Concomitant]
     Indication: HEART RATE
     Dosage: 25 MG
     Route: 048
     Dates: start: 2007
  3. AMLODIPINE [Concomitant]
     Indication: HYPERTENSION
     Dosage: 10 MG
     Route: 048
     Dates: start: 2010
  4. AMIODARONE [Concomitant]
     Indication: HEART RATE
     Dosage: 200 MG
     Route: 048
     Dates: start: 2010

REACTIONS (2)
  - Cerebrovascular accident [Recovered/Resolved with Sequelae]
  - Atrial fibrillation [Recovered/Resolved]
